FAERS Safety Report 11283458 (Version 3)
Quarter: 2017Q2

REPORT INFORMATION
  Report Type: Report from Study
  Country: US (occurrence: US)
  Receive Date: 20150720
  Receipt Date: 20170509
  Transmission Date: 20170829
  Serious: Yes (Other)
  Sender: FDA-Public Use
  Company Number: US-ROCHE-1607375

PATIENT
  Sex: Female

DRUGS (4)
  1. EVEROLIMUS [Suspect]
     Active Substance: EVEROLIMUS
     Indication: BREAST CANCER
     Route: 048
  2. TRASTUZUMAB [Suspect]
     Active Substance: TRASTUZUMAB
     Indication: BREAST CANCER
     Dosage: LOADING DOSE ON DAY 1
     Route: 042
  3. TRASTUZUMAB [Suspect]
     Active Substance: TRASTUZUMAB
     Route: 042
  4. PACLITAXEL. [Suspect]
     Active Substance: PACLITAXEL
     Indication: BREAST CANCER
     Dosage: ON DAY 1,8 AND 15 OF 4 WEEK CYCLE
     Route: 042

REACTIONS (46)
  - Alopecia [Unknown]
  - Interstitial lung disease [Unknown]
  - Pyrexia [Unknown]
  - Weight decreased [Unknown]
  - Leukopenia [Unknown]
  - Hyperglycaemia [Unknown]
  - Rash [Unknown]
  - Neutropenia [Unknown]
  - Fatigue [Unknown]
  - Oedema peripheral [Unknown]
  - Nausea [Unknown]
  - Decreased appetite [Unknown]
  - Hypertriglyceridaemia [Unknown]
  - Mouth ulceration [Unknown]
  - Urinary tract infection [Unknown]
  - Dyspnoea [Unknown]
  - Neuropathy peripheral [Unknown]
  - Pain in extremity [Unknown]
  - Upper respiratory tract infection [Unknown]
  - Peripheral sensory neuropathy [Unknown]
  - Thrombocytopenia [Unknown]
  - Myalgia [Unknown]
  - Diarrhoea [Unknown]
  - Arthralgia [Unknown]
  - Aspartate aminotransferase increased [Unknown]
  - Back pain [Unknown]
  - Pruritus [Unknown]
  - Pneumonitis [Unknown]
  - Stomatitis [Unknown]
  - Headache [Unknown]
  - Alanine aminotransferase increased [Unknown]
  - Hypoaesthesia [Unknown]
  - Dyspepsia [Unknown]
  - Cough [Unknown]
  - Vomiting [Unknown]
  - Asthenia [Unknown]
  - Hypercholesterolaemia [Unknown]
  - Dizziness [Unknown]
  - Abdominal pain [Unknown]
  - Hypokalaemia [Unknown]
  - Nail disorder [Unknown]
  - Nasopharyngitis [Unknown]
  - Anaemia [Unknown]
  - Hypertension [Unknown]
  - Erythema [Unknown]
  - Pneumonia [Unknown]
